FAERS Safety Report 16064601 (Version 1)
Quarter: 2019Q1

REPORT INFORMATION
  Report Type: Spontaneous
  Country: US (occurrence: US)
  Receive Date: 20190312
  Receipt Date: 20190312
  Transmission Date: 20190418
  Serious: Yes (Hospitalization, Other)
  Sender: FDA-Public Use
  Company Number: PHEH2019US010418

PATIENT
  Sex: Male

DRUGS (1)
  1. ENTRESTO [Suspect]
     Active Substance: SACUBITRIL\VALSARTAN
     Indication: CARDIOVASCULAR EVENT PROPHYLAXIS
     Dosage: 50 MG, BID
     Route: 048
     Dates: start: 20190219, end: 20190303

REACTIONS (2)
  - Cellulitis [Unknown]
  - Hypotension [Unknown]

NARRATIVE: CASE EVENT DATE: 20190301
